FAERS Safety Report 4476341-9 (Version None)
Quarter: 2004Q4

REPORT INFORMATION
  Report Type: 
  Country: None (occurrence: None)
  Receive Date: 20041016
  Receipt Date: 20041007
  Transmission Date: 20050328
  Serious: Yes (Hospitalization, Other)
  Sender: FDA-Public Use
  Company Number: BR-MERCK-0410BRA00294

PATIENT
  Age: 56 Year
  Sex: Female

DRUGS (18)
  1. [THERAPY UNSPECIFIED] [Concomitant]
     Route: 065
  2. ACETAMINOPHEN [Concomitant]
     Route: 065
  3. AMLODIPINE BESYLATE [Concomitant]
     Route: 065
  4. ASPIRIN [Concomitant]
     Route: 065
  5. BUTYLSCOPOLAMINE BROMIDE [Concomitant]
     Route: 065
  6. CHLORTHALIDONE [Concomitant]
     Route: 065
  7. CLOXAZOLAM [Concomitant]
     Route: 065
  8. ESOMEPRAZOLE MAGNESIUM [Concomitant]
     Route: 065
  9. PIRACETAM [Concomitant]
     Route: 065
  10. PROPAFENONE HYDROCHLORIDE [Concomitant]
     Route: 065
  11. PROPRANOLOL HYDROCHLORIDE [Concomitant]
     Route: 065
  12. VIOXX [Suspect]
     Indication: BONE PAIN
     Route: 048
     Dates: start: 20000101, end: 20040101
  13. VIOXX [Suspect]
     Indication: CHEST PAIN
     Route: 048
     Dates: start: 20000101, end: 20040101
  14. VIOXX [Concomitant]
     Route: 048
     Dates: start: 20000101, end: 20040101
  15. VIOXX [Concomitant]
     Route: 048
     Dates: start: 20000101, end: 20040101
  16. VIOXX [Concomitant]
     Route: 048
     Dates: start: 20000101, end: 20040101
  17. VIOXX [Concomitant]
     Route: 048
     Dates: start: 20000101, end: 20040101
  18. SULBUTIAMINE [Concomitant]
     Route: 065

REACTIONS (2)
  - INFARCTION [None]
  - THROMBOSIS [None]
